FAERS Safety Report 4681544-4 (Version None)
Quarter: 2005Q2

REPORT INFORMATION
  Report Type: 
  Country: None (occurrence: None)
  Receive Date: 20050603
  Receipt Date: 20050519
  Transmission Date: 20051028
  Serious: Yes (Hospitalization)
  Sender: FDA-Public Use
  Company Number: US-GLAXOSMITHKLINE-A0559297A

PATIENT
  Age: 53 Year
  Sex: Female
  Weight: 83.2 kg

DRUGS (4)
  1. BC [Suspect]
     Indication: PAIN
     Route: 048
     Dates: start: 19700101
  2. VIOXX [Concomitant]
  3. ATENOLOL [Concomitant]
  4. HYDROCHLOROTHIAZIDE [Concomitant]

REACTIONS (8)
  - ARTHRALGIA [None]
  - ARTHROPATHY [None]
  - CARTILAGE INJURY [None]
  - CHONDROPATHY [None]
  - JOINT EFFUSION [None]
  - OSTEOARTHRITIS [None]
  - SCIATICA [None]
  - WALKING AID USER [None]
